FAERS Safety Report 4299403-8 (Version None)
Quarter: 2004Q1

REPORT INFORMATION
  Report Type: 
  Country: None (occurrence: None)
  Receive Date: 20040217
  Receipt Date: 20040205
  Transmission Date: 20041129
  Serious: Yes (Death)
  Sender: FDA-Public Use
  Company Number: JP-JNJFOC-20040201538

PATIENT
  Age: 83 Year
  Sex: Female

DRUGS (5)
  1. FENTANYL [Suspect]
     Indication: CANCER PAIN
     Dosage: 2.5 MG, 1 IN 3 DAY, TRANSDERMAL
     Route: 062
     Dates: start: 20030417, end: 20030602
  2. ROXATIDINE ACETATE HCL [Concomitant]
  3. IRSOGLADINE MALEATE (IRSOGLADINE MALEATE) [Concomitant]
  4. SENNOSIDE (ALL OTHER THERAPEUTIC PRODUCTS) [Concomitant]
  5. METOCLOPRAMIDE [Concomitant]

REACTIONS (1)
  - BLOOD UREA INCREASED [None]
